FAERS Safety Report 20199683 (Version 2)
Quarter: 2024Q1

REPORT INFORMATION
  Report Type: Spontaneous
  Country: US (occurrence: US)
  Receive Date: 20211217
  Receipt Date: 20240201
  Transmission Date: 20240410
  Serious: No
  Sender: FDA-Public Use
  Company Number: US-NOVEN PHARMACEUTICALS, INC.-2020US006770

PATIENT
  Sex: Female
  Weight: 61.224 kg

DRUGS (3)
  1. ESTRADIOL [Suspect]
     Active Substance: ESTRADIOL
     Indication: Menopausal symptoms
     Dosage: 0.05 MG/ DAY, 2/WEEK
     Route: 062
     Dates: start: 2020
  2. ESTRADIOL [Suspect]
     Active Substance: ESTRADIOL
     Dosage: 0.075 MG/ DAY, 2/WEEK
     Route: 062
     Dates: start: 20200918, end: 2020
  3. NORETHINDRONE ACETATE [Concomitant]
     Active Substance: NORETHINDRONE ACETATE
     Indication: Menopausal symptoms
     Dosage: 5 MG, UNK
     Route: 048

REACTIONS (5)
  - Nipple pain [Recovered/Resolved]
  - Therapeutic product ineffective [Recovered/Resolved]
  - Product adhesion issue [Not Recovered/Not Resolved]
  - Product quality issue [Not Recovered/Not Resolved]
  - Off label use [Not Recovered/Not Resolved]

NARRATIVE: CASE EVENT DATE: 20200101
